FAERS Safety Report 5355620-7 (Version None)
Quarter: 2007Q2

REPORT INFORMATION
  Report Type: 
  Country: None (occurrence: None)
  Receive Date: 20070613
  Receipt Date: 20070604
  Transmission Date: 20071010
  Serious: Yes (Life-Threatening, Disabling, Other)
  Sender: FDA-Public Use
  Company Number: B0474436A

PATIENT
  Age: 96 Year
  Sex: Female
  Weight: 55 kg

DRUGS (3)
  1. AMOXICILLIN [Suspect]
     Route: 048
     Dates: start: 20070507, end: 20070507
  2. CEPHALEXIN [Suspect]
     Route: 048
     Dates: start: 20070507, end: 20070507
  3. FELODIPINE [Concomitant]
     Indication: HYPERTENSION
     Route: 048

REACTIONS (3)
  - ANAPHYLACTIC REACTION [None]
  - CIRCULATORY COLLAPSE [None]
  - RASH ERYTHEMATOUS [None]
